FAERS Safety Report 18771387 (Version 1)
Quarter: 2021Q1

REPORT INFORMATION
  Report Type: Spontaneous
  Country: US (occurrence: US)
  Receive Date: 20210122
  Receipt Date: 20210122
  Transmission Date: 20210419
  Serious: No
  Sender: FDA-Public Use
  Company Number: US-SA-2021SA017247

PATIENT
  Age: 15 Year

DRUGS (1)
  1. FABRAZYME [Suspect]
     Active Substance: AGALSIDASE BETA
     Indication: FABRY^S DISEASE
     Dosage: DRUG STRUCTURE DOSAGE : 95 MG DRUG INTERVAL DOSAGE : TWICE WEEKLY

REACTIONS (1)
  - Influenza [Unknown]
